FAERS Safety Report 5784018-2 (Version None)
Quarter: 2008Q2

REPORT INFORMATION
  Report Type: 
  Country: None (occurrence: None)
  Receive Date: 20080605
  Receipt Date: 20080401
  Transmission Date: 20081010
  Serious: No
  Sender: FDA-Public Use
  Company Number: A0718043A

PATIENT
  Age: 54 Year
  Sex: Female

DRUGS (1)
  1. ALLI [Suspect]
     Dates: start: 20080326, end: 20080327

REACTIONS (8)
  - ABDOMINAL PAIN UPPER [None]
  - BLOOD URINE PRESENT [None]
  - CHROMATURIA [None]
  - DIARRHOEA [None]
  - ERUCTATION [None]
  - FLATULENCE [None]
  - HAEMATOCHEZIA [None]
  - PYREXIA [None]
